FAERS Safety Report 17073575 (Version 2)
Quarter: 2020Q1

REPORT INFORMATION
  Report Type: Report from Study
  Country: CN (occurrence: CN)
  Receive Date: 20191126
  Receipt Date: 20200217
  Transmission Date: 20200409
  Serious: Yes (Other)
  Sender: FDA-Public Use
  Company Number: CN-ROCHE-2477849

PATIENT

DRUGS (2)
  1. CAPECITABINE. [Suspect]
     Active Substance: CAPECITABINE
     Indication: PANCREATIC CARCINOMA
     Route: 048
  2. GEMCITABINE. [Suspect]
     Active Substance: GEMCITABINE
     Indication: PANCREATIC CARCINOMA
     Dosage: ONE CYCLE
     Route: 042

REACTIONS (20)
  - Vomiting [Unknown]
  - Abdominal distension [Unknown]
  - Duodenal ulcer [Unknown]
  - Nausea [Unknown]
  - Asthenia [Unknown]
  - Constipation [Unknown]
  - Gastric ulcer [Unknown]
  - Decreased appetite [Unknown]
  - Neutropenia [Unknown]
  - Lymphopenia [Unknown]
  - Gastritis [Unknown]
  - Enteritis [Unknown]
  - Abdominal pain [Unknown]
  - Haemorrhage [Unknown]
  - Intestinal fistula [Unknown]
  - Thrombocytopenia [Unknown]
  - Dehydration [Unknown]
  - Duodenal stenosis [Unknown]
  - Haemoglobin decreased [Unknown]
  - Fatigue [Unknown]
